FAERS Safety Report 23308796 (Version 1)
Quarter: 2023Q4

REPORT INFORMATION
  Report Type: Spontaneous
  Country: US (occurrence: None)
  Receive Date: 20231217
  Receipt Date: 20231217
  Transmission Date: 20240110
  Serious: Yes (Life-Threatening, Disabling)
  Sender: FDA-Public Use
  Company Number: None

PATIENT
  Age: 36 Year
  Sex: Female
  Weight: 120.6 kg

DRUGS (1)
  1. SEMAGLUTIDE [Suspect]
     Active Substance: SEMAGLUTIDE
     Indication: Weight decreased
     Dates: start: 20231129, end: 20231213

REACTIONS (4)
  - Eating disorder [None]
  - Depression [None]
  - Suicidal ideation [None]
  - Product use in unapproved indication [None]

NARRATIVE: CASE EVENT DATE: 20231211
